FAERS Safety Report 7989414-0 (Version None)
Quarter: 2011Q4

REPORT INFORMATION
  Report Type: 
  Country: None (occurrence: None)
  Receive Date: 20111219
  Receipt Date: 20111214
  Transmission Date: 20120403
  Serious: Yes (Life-Threatening)
  Sender: FDA-Public Use
  Company Number: IT-ASTRAZENECA-2011SE75677

PATIENT
  Age: 71 Year
  Sex: Female
  Weight: 70 kg

DRUGS (3)
  1. RASILEZ (ALISKIREN) [Concomitant]
     Indication: HYPERTENSION
     Route: 048
  2. FULVESTRANT [Suspect]
     Indication: BREAST CANCER METASTATIC
     Route: 030
     Dates: start: 20110506, end: 20111121
  3. LAPATINIB [Suspect]
     Indication: BREAST CANCER METASTATIC
     Dosage: DAILY
     Route: 048
     Dates: start: 20110506, end: 20111121

REACTIONS (1)
  - EJECTION FRACTION DECREASED [None]
